FAERS Safety Report 7718386-9 (Version None)
Quarter: 2011Q3

REPORT INFORMATION
  Report Type: 
  Country: None (occurrence: None)
  Receive Date: 20110830
  Receipt Date: 20110823
  Transmission Date: 20111222
  Serious: Yes (Death, Other)
  Sender: FDA-Public Use
  Company Number: US-PFIZER INC-2010082993

PATIENT
  Sex: Male

DRUGS (2)
  1. CHANTIX [Suspect]
     Indication: SMOKING CESSATION THERAPY
     Dosage: UNK
     Dates: start: 20071001, end: 20071001
  2. CHANTIX [Suspect]
     Dosage: UNK
     Dates: start: 20080424, end: 20080428

REACTIONS (2)
  - DEPRESSION [None]
  - COMPLETED SUICIDE [None]
